FAERS Safety Report 8328562-2 (Version None)
Quarter: 2012Q2

REPORT INFORMATION
  Report Type: 
  Country: None (occurrence: None)
  Receive Date: 20120502
  Receipt Date: 20120501
  Transmission Date: 20120825
  Serious: No
  Sender: FDA-Public Use
  Company Number: US-PFIZER INC-2012107159

PATIENT
  Sex: Male
  Weight: 59 kg

DRUGS (4)
  1. CELEBREX [Suspect]
     Indication: NECK PAIN
     Dosage: 200 MG, DAILY
     Route: 048
     Dates: start: 20120430
  2. ATENOLOL [Concomitant]
     Indication: BLOOD PRESSURE ABNORMAL
     Dosage: 50 MG, 2X/DAY
  3. HYDROCHLOROTHIAZIDE [Concomitant]
     Indication: BLOOD PRESSURE ABNORMAL
     Dosage: 25 MG, DAILY
  4. BENAZEPRIL [Concomitant]
     Indication: BLOOD PRESSURE ABNORMAL
     Dosage: 10 MG, DAILY

REACTIONS (2)
  - DRUG INEFFECTIVE [None]
  - NECK PAIN [None]
